FAERS Safety Report 6484235-2 (Version None)
Quarter: 2009Q4

REPORT INFORMATION
  Report Type: 
  Country: None (occurrence: None)
  Receive Date: 20091209
  Receipt Date: 20091208
  Transmission Date: 20100525
  Serious: Yes (Hospitalization)
  Sender: FDA-Public Use
  Company Number: B0605818A

PATIENT
  Sex: Female

DRUGS (3)
  1. WELLBUTRIN [Suspect]
     Indication: DEPRESSION
     Dosage: 150MG PER DAY
     Route: 048
     Dates: start: 20030925, end: 20031027
  2. XANAX [Concomitant]
     Dates: start: 20030925, end: 20031226
  3. GANATON [Concomitant]
     Dates: start: 20030925

REACTIONS (2)
  - DEPRESSION [None]
  - FEELING GUILTY [None]
